FAERS Safety Report 12398329 (Version 1)
Quarter: 2016Q2

REPORT INFORMATION
  Report Type: Spontaneous
  Country: US (occurrence: US)
  Receive Date: 20160524
  Receipt Date: 20160524
  Transmission Date: 20160815
  Serious: Yes (Other)
  Sender: FDA-Public Use
  Company Number: US-BAYER-2016-096650

PATIENT
  Sex: Female

DRUGS (14)
  1. FUROSEMIDE. [Concomitant]
     Active Substance: FUROSEMIDE
     Dosage: 1 DF, QD
     Dates: start: 20160427
  2. POTASSIUM CHLORIDE. [Concomitant]
     Active Substance: POTASSIUM CHLORIDE
     Dosage: 2 DF, TID
     Route: 048
     Dates: start: 20160427
  3. GABAPENTIN. [Concomitant]
     Active Substance: GABAPENTIN
     Dosage: 1 DF, TID
     Route: 048
     Dates: start: 20160427
  4. NITROSTAT [Concomitant]
     Active Substance: NITROGLYCERIN
     Dosage: 1 DF, PRN
     Dates: start: 20140915
  5. SPIRONOLACTONE. [Concomitant]
     Active Substance: SPIRONOLACTONE
     Dosage: 1 DF, QD
     Dates: start: 20160215
  6. PEPCID [Concomitant]
     Active Substance: FAMOTIDINE
     Indication: PEPTIC ULCER
     Dosage: 1 DF, QD
     Dates: start: 20160223
  7. SYNTHROID [Concomitant]
     Active Substance: LEVOTHYROXINE SODIUM
     Dosage: 1 DF, QD
     Dates: start: 20160107
  8. ATIVAN [Concomitant]
     Active Substance: LORAZEPAM
     Dosage: 1 DF, TID
     Dates: start: 20151019
  9. BALSALAZIDE [Concomitant]
     Active Substance: BALSALAZIDE
     Dosage: 3 DF, BID
     Dates: start: 20130722
  10. METOPROLOL SUCCINATE. [Concomitant]
     Active Substance: METOPROLOL SUCCINATE
     Dosage: 1 DF, QD
     Route: 048
     Dates: start: 20151218
  11. ECOTRIN [Concomitant]
     Active Substance: ASPIRIN
     Dosage: 1 DF, QD
     Dates: start: 20130722
  12. DULOXETINE. [Concomitant]
     Active Substance: DULOXETINE
     Dosage: 1 DF, QD
     Dates: start: 20160223
  13. ALEVE [Suspect]
     Active Substance: NAPROXEN SODIUM
  14. ATORVASTATIN CALCIUM. [Concomitant]
     Active Substance: ATORVASTATIN CALCIUM
     Dosage: 1 DF, QD
     Dates: start: 20160401

REACTIONS (1)
  - Gastrointestinal haemorrhage [None]
